FAERS Safety Report 24289722 (Version 1)
Quarter: 2024Q3

REPORT INFORMATION
  Report Type: Spontaneous
  Country: DE (occurrence: DE)
  Receive Date: 20240906
  Receipt Date: 20240906
  Transmission Date: 20241016
  Serious: No
  Sender: ALKEM
  Company Number: DE-ALKEM LABORATORIES LIMITED-DE-ALKEM-2024-14461

PATIENT
  Age: 96 Year
  Sex: Male

DRUGS (3)
  1. PREGABALIN [Suspect]
     Active Substance: PREGABALIN
     Indication: Neuropathy peripheral
     Dosage: UNK
     Route: 065
  2. DIETHYLAMINE SALICYLATE\ESCIN [Suspect]
     Active Substance: DIETHYLAMINE SALICYLATE\ESCIN
     Indication: Pain in extremity
     Dosage: UNK
     Route: 065
  3. DIETHYLAMINE SALICYLATE\ESCIN [Suspect]
     Active Substance: DIETHYLAMINE SALICYLATE\ESCIN
     Indication: Paraesthesia

REACTIONS (5)
  - Mental disorder [Unknown]
  - Emotional disorder [Unknown]
  - Paraesthesia [Unknown]
  - Therapeutic response unexpected [Unknown]
  - Pain in extremity [Unknown]
